FAERS Safety Report 5748997-1 (Version None)
Quarter: 2008Q2

REPORT INFORMATION
  Report Type: 
  Country: None (occurrence: None)
  Receive Date: 20080527
  Receipt Date: 20080514
  Transmission Date: 20081010
  Serious: Yes (Hospitalization)
  Sender: FDA-Public Use
  Company Number: FR-ELI_LILLY_AND_COMPANY-FR200805003187

PATIENT
  Age: 58 Year
  Sex: Female

DRUGS (10)
  1. ZYPREXA [Suspect]
     Indication: MANIA
     Dosage: 10 MG, DAILY (1/D)
     Route: 030
     Dates: start: 20080509, end: 20080510
  2. DEPAKOTE [Concomitant]
     Indication: DYSTHYMIC DISORDER
     Dosage: 1 UNK, DAILY (1/D)
     Route: 048
     Dates: end: 20080506
  3. DEPAKOTE [Concomitant]
     Dosage: 1 UNK, DAILY (1/D)
     Route: 048
     Dates: start: 20080510, end: 20080510
  4. XANAX [Interacting]
     Indication: DYSTHYMIC DISORDER
     Dosage: 0.5 MG, 2/D
     Route: 048
     Dates: end: 20080506
  5. XANAX [Interacting]
     Dosage: 0.5 MG, 2/D
     Route: 048
     Dates: start: 20080510, end: 20080510
  6. NOZINAN [Concomitant]
     Indication: DYSTHYMIC DISORDER
     Dosage: 25 MG, DAILY (1/D)
     Route: 048
     Dates: end: 20080506
  7. NOZINAN [Concomitant]
     Dosage: 25 MG, DAILY (1/D)
     Route: 048
     Dates: start: 20080510, end: 20080510
  8. TERALITHE [Concomitant]
     Indication: DYSTHYMIC DISORDER
     Dosage: UNK, UNK
     Route: 048
     Dates: end: 20080506
  9. TERALITHE [Concomitant]
     Route: 048
     Dates: start: 20080510, end: 20080510
  10. LEPTICUR [Concomitant]
     Indication: DYSTHYMIC DISORDER
     Route: 048
     Dates: start: 20080510, end: 20080510

REACTIONS (2)
  - COMA [None]
  - DRUG INTERACTION [None]
